FAERS Safety Report 10973427 (Version 1)
Quarter: 2015Q1

REPORT INFORMATION
  Report Type: Spontaneous
  Country: US (occurrence: None)
  Receive Date: 20150331
  Receipt Date: 20150331
  Transmission Date: 20150721
  Serious: Yes (Hospitalization)
  Sender: FDA-Public Use
  Company Number: None

PATIENT
  Age: 73 Year
  Sex: Female
  Weight: 91.17 kg

DRUGS (15)
  1. SINGULAIR [Concomitant]
     Active Substance: MONTELUKAST SODIUM
  2. LEVOFLOXACIN 500 MG ZYDUS [Suspect]
     Active Substance: LEVOFLOXACIN
     Indication: PULMONARY CONGESTION
     Dosage: 500TABLETSMS/ 7 ONCE DAILY TAKEN BY MOUTH
     Route: 048
     Dates: start: 20150326, end: 20150326
  3. BOVINE AORTIC VALVE [Concomitant]
  4. VITAMIN C [Concomitant]
     Active Substance: ASCORBIC ACID
  5. BENAZEPRIL [Concomitant]
     Active Substance: BENAZEPRIL\BENAZEPRIL HYDROCHLORIDE
  6. ALBUTEROL INHALER [Concomitant]
     Active Substance: ALBUTEROL
  7. LEVOFLOXACIN 500 MG ZYDUS [Suspect]
     Active Substance: LEVOFLOXACIN
     Indication: BODY TEMPERATURE
     Dosage: 500TABLETSMS/ 7 ONCE DAILY TAKEN BY MOUTH
     Route: 048
     Dates: start: 20150326, end: 20150326
  8. METOPROLOL [Concomitant]
     Active Substance: METOPROLOL
  9. COLACE [Concomitant]
     Active Substance: DOCUSATE SODIUM
  10. LEVOFLOXACIN 500 MG ZYDUS [Suspect]
     Active Substance: LEVOFLOXACIN
     Indication: SINUS CONGESTION
     Dosage: 500TABLETSMS/ 7 ONCE DAILY TAKEN BY MOUTH
     Route: 048
     Dates: start: 20150326, end: 20150326
  11. SIMVASTATIN. [Concomitant]
     Active Substance: SIMVASTATIN
  12. BENADRYL [Concomitant]
     Active Substance: DIPHENHYDRAMINE HYDROCHLORIDE
  13. TRAMADOL [Concomitant]
     Active Substance: TRAMADOL
  14. ZYRTEC [Concomitant]
     Active Substance: CETIRIZINE HYDROCHLORIDE
  15. MULTIVITAMIN [Concomitant]
     Active Substance: VITAMINS

REACTIONS (2)
  - Blood pressure increased [None]
  - Urticaria [None]

NARRATIVE: CASE EVENT DATE: 20150329
